FAERS Safety Report 6355295-4 (Version None)
Quarter: 2009Q3

REPORT INFORMATION
  Report Type: 
  Country: None (occurrence: None)
  Receive Date: 20090914
  Receipt Date: 20090831
  Transmission Date: 20100115
  Serious: Yes (Death, Other)
  Sender: FDA-Public Use
  Company Number: FR-ELI_LILLY_AND_COMPANY-FR200909000850

PATIENT
  Age: 45 Year
  Sex: Male

DRUGS (2)
  1. GEMZAR [Suspect]
     Indication: URETHRAL CANCER
  2. CISPLATIN [Concomitant]
     Indication: URETHRAL CANCER

REACTIONS (4)
  - ACUTE MYELOID LEUKAEMIA [None]
  - DEATH [None]
  - GENERAL PHYSICAL HEALTH DETERIORATION [None]
  - MULTI-ORGAN FAILURE [None]
